FAERS Safety Report 4955445-8 (Version None)
Quarter: 2006Q1

REPORT INFORMATION
  Report Type: 
  Country: None (occurrence: None)
  Receive Date: 20060127
  Receipt Date: 20050711
  Transmission Date: 20060701
  Serious: Yes (Hospitalization)
  Sender: FDA-Public Use
  Company Number: 05-07-1205

PATIENT
  Age: 56 Year
  Sex: Female
  Weight: 82.1011 kg

DRUGS (4)
  1. CLOZAPINE [Suspect]
     Indication: SCHIZOAFFECTIVE DISORDER
     Dosage: 300MG QD, ORAL
     Route: 048
     Dates: start: 19980101
  2. KLONOPIN [Concomitant]
  3. LUVOX [Concomitant]
  4. STELAZINE [Concomitant]

REACTIONS (2)
  - DRUG INEFFECTIVE FOR UNAPPROVED INDICATION [None]
  - IMPAIRED SELF-CARE [None]
